FAERS Safety Report 4279690-2 (Version None)
Quarter: 2004Q1

REPORT INFORMATION
  Report Type: 
  Country: None (occurrence: None)
  Receive Date: 20040123
  Receipt Date: 20040109
  Transmission Date: 20041129
  Serious: Yes (Congenital Anomaly)
  Sender: FDA-Public Use
  Company Number: 2004-UK-00019UK(0)

PATIENT
  Age: 30 Week
  Sex: Male

DRUGS (2)
  1. NEVIRAPINE (00015/0215/A) (NEVIRAPINE) (NR) [Suspect]
     Indication: HIV TEST POSITIVE
     Dosage: 200 MG
     Route: 015
  2. COMBIVIR [Suspect]
     Indication: HIV TEST POSITIVE
     Route: 015

REACTIONS (7)
  - ABDOMINAL DISTENSION [None]
  - CHORDEE [None]
  - CRYPTORCHISM [None]
  - FOETAL GROWTH RETARDATION [None]
  - HYPOSPADIAS [None]
  - MATERNAL DRUGS AFFECTING FOETUS [None]
  - NECROTISING COLITIS [None]
